FAERS Safety Report 6671579-4 (Version None)
Quarter: 2010Q2

REPORT INFORMATION
  Report Type: 
  Country: None (occurrence: None)
  Receive Date: 20100407
  Receipt Date: 20100330
  Transmission Date: 20101027
  Serious: Yes (Hospitalization)
  Sender: FDA-Public Use
  Company Number: US-PURDUE-USA-2010-0043021

PATIENT
  Sex: Male

DRUGS (1)
  1. DILAUDID-HP [Suspect]
     Indication: DRUG USE FOR UNKNOWN INDICATION

REACTIONS (2)
  - CARDIAC VALVE DISEASE [None]
  - PULMONARY EMBOLISM [None]
